FAERS Safety Report 13170363 (Version 2)
Quarter: 2017Q1

REPORT INFORMATION
  Report Type: Spontaneous
  Country: JP (occurrence: JP)
  Receive Date: 20170131
  Receipt Date: 20170208
  Transmission Date: 20170428
  Serious: Yes (Other)
  Sender: FDA-Public Use
  Company Number: JP-MYLANLABS-2017M1005117

PATIENT

DRUGS (2)
  1. PACLITAXEL. [Concomitant]
     Active Substance: PACLITAXEL
     Indication: OVARIAN CANCER
     Dosage: UNK, CYCLE
     Route: 065
  2. CARBOPLATIN MYLAN [Suspect]
     Active Substance: CARBOPLATIN
     Indication: OVARIAN CANCER
     Dosage: UNK, CYCLE
     Route: 065

REACTIONS (1)
  - Aortitis [Recovered/Resolved]
